FAERS Safety Report 13608337 (Version 3)
Quarter: 2019Q4

REPORT INFORMATION
  Report Type: Spontaneous
  Country: PL (occurrence: PL)
  Receive Date: 20170602
  Receipt Date: 20191024
  Transmission Date: 20200122
  Serious: Yes (Death, Hospitalization, Other)
  Sender: FDA-Public Use
  Company Number: PL-CELGENEUS-POL-20170508330

PATIENT
  Age: 57 Year
  Sex: Male

DRUGS (4)
  1. AZACITIDINE. [Suspect]
     Active Substance: AZACITIDINE
     Route: 065
     Dates: start: 20160914, end: 20160920
  2. HYDROXYCARBAMIDE [Concomitant]
     Active Substance: HYDROXYUREA
     Indication: MYELODYSPLASTIC SYNDROME
     Route: 065
     Dates: start: 2016, end: 2016
  3. HYDROXYCARBAMIDE [Concomitant]
     Active Substance: HYDROXYUREA
     Dosage: 3X2TABLET
     Route: 065
     Dates: start: 2016
  4. AZACITIDINE. [Suspect]
     Active Substance: AZACITIDINE
     Indication: ACUTE MYELOID LEUKAEMIA
     Dosage: 75 MILLIGRAM/SQ. METER
     Route: 058
     Dates: start: 20160811, end: 20160817

REACTIONS (5)
  - Transient ischaemic attack [Recovered/Resolved]
  - Haemorrhage urinary tract [Fatal]
  - Colitis [Unknown]
  - Varicose vein [Recovering/Resolving]
  - Aplasia [Unknown]

NARRATIVE: CASE EVENT DATE: 20161003
